FAERS Safety Report 10912487 (Version 1)
Quarter: 2015Q1

REPORT INFORMATION
  Report Type: Spontaneous
  Country: US (occurrence: US)
  Receive Date: 20150313
  Receipt Date: 20150313
  Transmission Date: 20150721
  Serious: No
  Sender: FDA-Public Use
  Company Number: US-BRACCO-011490

PATIENT
  Sex: Female

DRUGS (1)
  1. GASTROGRAFIN [Suspect]
     Active Substance: DIATRIZOATE MEGLUMINE\DIATRIZOATE SODIUM
     Indication: X-RAY GASTROINTESTINAL TRACT
     Route: 048
     Dates: start: 20141112, end: 20141112

REACTIONS (2)
  - Faeces discoloured [Unknown]
  - Diarrhoea [Unknown]

NARRATIVE: CASE EVENT DATE: 20141112
